FAERS Safety Report 13340046 (Version 2)
Quarter: 2017Q3

REPORT INFORMATION
  Report Type: Spontaneous
  Country: NL (occurrence: NL)
  Receive Date: 20170316
  Receipt Date: 20170722
  Transmission Date: 20171127
  Serious: Yes (Other)
  Sender: FDA-Public Use
  Company Number: NL-ROCHE-1903461

PATIENT
  Age: 63 Year
  Sex: Male

DRUGS (5)
  1. TRASTUZUMAB. [Suspect]
     Active Substance: TRASTUZUMAB
     Indication: METASTATIC SALIVARY GLAND CANCER
     Route: 058
  2. PERTUZUMAB. [Suspect]
     Active Substance: PERTUZUMAB
     Indication: METASTATIC SALIVARY GLAND CANCER
     Dosage: LOADING DOSE IN THE FIRST CYCLE
     Route: 042
  3. PERTUZUMAB. [Suspect]
     Active Substance: PERTUZUMAB
     Route: 042
  4. DOCETAXEL. [Suspect]
     Active Substance: DOCETAXEL
     Indication: METASTATIC SALIVARY GLAND CANCER
     Route: 042
  5. DEXAMETHASON [Concomitant]
     Active Substance: DEXAMETHASONE
     Indication: DERMATITIS

REACTIONS (5)
  - Pharyngeal abscess [Recovered/Resolved]
  - Subcutaneous abscess [Recovered/Resolved]
  - Dermatitis [Recovered/Resolved]
  - Erysipelas [Recovered/Resolved]
  - Off label use [Unknown]
